FAERS Safety Report 6168918-X (Version None)
Quarter: 2009Q2

REPORT INFORMATION
  Report Type: 
  Country: None (occurrence: None)
  Receive Date: 20090427
  Receipt Date: 20090422
  Transmission Date: 20091009
  Serious: Yes (Death, Other)
  Sender: FDA-Public Use
  Company Number: PHHY2009CA03709

PATIENT
  Sex: Male

DRUGS (3)
  1. ZOMETA [Suspect]
     Indication: RENAL CELL CARCINOMA
     Dosage: 4 MG EVERY 12 WEEKS
     Route: 042
     Dates: start: 20061101, end: 20061111
  2. ZOMETA [Suspect]
     Indication: RENAL CANCER
  3. ZOMETA [Suspect]
     Indication: METASTASES TO BONE

REACTIONS (11)
  - BLINDNESS UNILATERAL [None]
  - BLOOD ALBUMIN DECREASED [None]
  - BLOOD CALCIUM DECREASED [None]
  - BLOOD SODIUM DECREASED [None]
  - CATARACT [None]
  - DEATH [None]
  - GENERAL PHYSICAL HEALTH DETERIORATION [None]
  - GLAUCOMA [None]
  - HAEMOGLOBIN DECREASED [None]
  - JAW DISORDER [None]
  - OSTEONECROSIS [None]
